FAERS Safety Report 25004777 (Version 1)
Quarter: 2025Q1

REPORT INFORMATION
  Report Type: Report from Study
  Country: US (occurrence: US)
  Receive Date: 20250224
  Receipt Date: 20250224
  Transmission Date: 20250408
  Serious: Yes (Other)
  Sender: ALNYLAM PHARMACEUTICALS
  Company Number: US-ALNYLAM PHARMACEUTICALS, INC.-ALN-2025-001138

PATIENT

DRUGS (1)
  1. GIVLAARI [Suspect]
     Active Substance: GIVOSIRAN SODIUM
     Indication: Product used for unknown indication
     Dosage: 166.75 (UNITS NOT REPORTED), MONTHLY (189 MG/ML VIALS)
     Route: 058
     Dates: start: 20250128, end: 20250128

REACTIONS (1)
  - Porphyria acute [Unknown]

NARRATIVE: CASE EVENT DATE: 20250101
